FAERS Safety Report 25225472 (Version 1)
Quarter: 2025Q2

REPORT INFORMATION
  Report Type: Spontaneous
  Country: US (occurrence: US)
  Receive Date: 20250422
  Receipt Date: 20250422
  Transmission Date: 20250717
  Serious: Yes (Hospitalization)
  Sender: MISSION PHARMACAL COMPANY
  Company Number: US-Mission Pharmacal Company-2175371

PATIENT
  Age: 14 Year
  Sex: Female

DRUGS (2)
  1. THIOLA EC [Suspect]
     Active Substance: TIOPRONIN
     Indication: Nephrolithiasis
     Dates: start: 20240529
  2. THIOLA EC [Suspect]
     Active Substance: TIOPRONIN
     Dates: start: 20250313

REACTIONS (1)
  - Kidney infection [Unknown]
